FAERS Safety Report 8171385-8 (Version None)
Quarter: 2012Q1

REPORT INFORMATION
  Report Type: 
  Country: None (occurrence: None)
  Receive Date: 20120104
  Receipt Date: 20110928
  Transmission Date: 20120608
  Serious: No
  Sender: FDA-Public Use
  Company Number: 2011HGS-002595

PATIENT
  Age: 26 Year
  Sex: Female
  Weight: 72.5755 kg

DRUGS (3)
  1. KEPPRA [Concomitant]
  2. ARALEN (CHLOROQUINE PHOPSHATE) [Concomitant]
  3. BENLYSTA [Suspect]
     Indication: SYSTEMIC LUPUS ERYTHEMATOSUS
     Dosage: 10 MG/KG, 1 IN 2 WK, INTRAVENOUS DRIP
     Route: 041
     Dates: start: 20110830

REACTIONS (2)
  - BONE PAIN [None]
  - HYPOAESTHESIA [None]
